FAERS Safety Report 8604759-9 (Version None)
Quarter: 2012Q3

REPORT INFORMATION
  Report Type: 
  Country: None (occurrence: None)
  Receive Date: 20120820
  Receipt Date: 20120810
  Transmission Date: 20120928
  Serious: Yes (Hospitalization, Other)
  Sender: FDA-Public Use
  Company Number: US-JNJFOC-20100305558

PATIENT
  Sex: Male

DRUGS (4)
  1. LEVAQUIN [Suspect]
     Indication: URINARY TRACT INFECTION
     Route: 048
     Dates: start: 20080201
  2. LEVAQUIN [Suspect]
     Route: 042
  3. LEVAQUIN [Suspect]
     Indication: SINUSITIS
     Route: 048
     Dates: start: 20080201
  4. CIPROFLOXACIN HCL [Suspect]
     Indication: SINUSITIS
     Route: 048

REACTIONS (14)
  - TENDONITIS [None]
  - DEPRESSION [None]
  - LIGAMENT SPRAIN [None]
  - TENDON RUPTURE [None]
  - TENDON DISORDER [None]
  - RASH [None]
  - TENOSYNOVITIS [None]
  - ARTHRALGIA [None]
  - UNEVALUABLE EVENT [None]
  - ROTATOR CUFF SYNDROME [None]
  - GASTRIC DISORDER [None]
  - FLUSHING [None]
  - RESPIRATORY DISORDER [None]
  - PRURITUS [None]
